FAERS Safety Report 16033088 (Version 1)
Quarter: 2019Q1

REPORT INFORMATION
  Report Type: Spontaneous
  Country: US (occurrence: US)
  Receive Date: 20190305
  Receipt Date: 20190305
  Transmission Date: 20190418
  Serious: No
  Sender: FDA-Public Use
  Company Number: US-IMPAX LABORATORIES, LLC-2018-IPXL-02314

PATIENT
  Age: 73 Year
  Sex: Male
  Weight: 86 kg

DRUGS (21)
  1. RYTARY [Suspect]
     Active Substance: CARBIDOPA\LEVODOPA
     Dosage: 36.25/145MG, TWO CAPSULES, THREE TIMES A DAY
     Route: 048
     Dates: start: 20180627, end: 201807
  2. NUEDEXTA [Concomitant]
     Active Substance: DEXTROMETHORPHAN HYDROBROMIDE\QUINIDINE SULFATE
     Indication: PRODUCT USED FOR UNKNOWN INDICATION
     Dosage: UNK, 1 TABLET, TWO TIMES DAILY
     Route: 048
     Dates: start: 201711
  3. VITAMIN D3 [Concomitant]
     Active Substance: CHOLECALCIFEROL
     Indication: SUPPLEMENTATION THERAPY
     Dosage: 1 CAPSULE, UNK, AS DIRECTED
     Route: 048
     Dates: start: 2015
  4. DIGOXIN. [Concomitant]
     Active Substance: DIGOXIN
     Indication: ATRIAL FIBRILLATION
     Dosage: UNK, 1 TABLET, ONCE DAILY
     Route: 048
     Dates: start: 201710
  5. RYTARY [Suspect]
     Active Substance: CARBIDOPA\LEVODOPA
     Indication: PARKINSON^S DISEASE
     Dosage: 36.25/145MG, THREE CAPSULES, THREE TIMES A DAY
     Route: 048
     Dates: start: 20180620, end: 20180624
  6. ALLOPURINOL. [Concomitant]
     Active Substance: ALLOPURINOL
     Indication: GOUT
     Dosage: UNK, 1 TABLET, ONCE DAILY
     Route: 048
     Dates: start: 201710
  7. RYTARY [Suspect]
     Active Substance: CARBIDOPA\LEVODOPA
     Dosage: 23.75 /95 MG,ONE CAPSULE, THREE TIMES A DAY
     Route: 048
     Dates: start: 20180627, end: 201807
  8. SEROQUEL [Concomitant]
     Active Substance: QUETIAPINE FUMARATE
     Indication: INSOMNIA
     Dosage: 25 MG, ONCE DAILY
     Route: 048
     Dates: start: 20180620
  9. ATORVASTATIN [Concomitant]
     Active Substance: ATORVASTATIN
     Indication: BLOOD CHOLESTEROL ABNORMAL
     Dosage: UNK
     Route: 065
  10. XARELTO [Concomitant]
     Active Substance: RIVAROXABAN
     Indication: ATRIAL FIBRILLATION
     Dosage: 40 MG, ONCE DAILY
     Route: 048
     Dates: start: 201710
  11. TRAZODONE [Concomitant]
     Active Substance: TRAZODONE HYDROCHLORIDE
     Indication: INSOMNIA
  12. LASIX [Concomitant]
     Active Substance: FUROSEMIDE
     Indication: FLUID RETENTION
  13. ZOLOFT [Concomitant]
     Active Substance: SERTRALINE HYDROCHLORIDE
     Indication: DEPRESSION
     Dosage: 100 MG, ONCE DAILY
     Route: 048
     Dates: start: 201804
  14. MYRBETRIQ [Concomitant]
     Active Substance: MIRABEGRON
     Indication: INCONTINENCE
     Dosage: 50 MG, ONCE DAILY
     Route: 048
     Dates: start: 20180618
  15. METOPROLOL. [Concomitant]
     Active Substance: METOPROLOL
     Indication: ATRIAL FIBRILLATION
     Dosage: UNK, 1 TABLET, ONCE DAILY
     Route: 048
     Dates: start: 201712, end: 201806
  16. LASIX [Concomitant]
     Active Substance: FUROSEMIDE
     Indication: OEDEMA PERIPHERAL
     Dosage: 40 MG, ONCE DAILY
     Route: 048
     Dates: start: 201804
  17. WELLBUTRIN [Concomitant]
     Active Substance: BUPROPION HYDROCHLORIDE
     Indication: DEPRESSION
     Dosage: UNK, 1 TABLET, ONCE DAILY
     Route: 048
     Dates: start: 201804
  18. NUPLAZID [Concomitant]
     Active Substance: PIMAVANSERIN TARTRATE
     Indication: HALLUCINATION
     Dosage: UNK, 2 TABLETS, BEDTIME
     Route: 048
     Dates: start: 201711, end: 20180620
  19. TRAZODONE [Concomitant]
     Active Substance: TRAZODONE HYDROCHLORIDE
     Indication: DEPRESSION
     Dosage: UNK, 1 TABLET, ONCE DAILY
     Route: 048
     Dates: start: 201710
  20. METFORMIN [Concomitant]
     Active Substance: METFORMIN HYDROCHLORIDE
     Indication: DIABETES MELLITUS
     Dosage: 1000 MG, TWO TIMES DAILY
     Route: 048
     Dates: start: 201710
  21. SLOW MAG [Concomitant]
     Active Substance: MAGNESIUM CHLORIDE
     Indication: BLOOD ELECTROLYTES
     Dosage: UNK, 2 TABLETS, TWO TIMES DAILY
     Route: 048
     Dates: start: 2015

REACTIONS (8)
  - Akinesia [Not Recovered/Not Resolved]
  - Dyskinesia [Recovered/Resolved]
  - Gait inability [Recovering/Resolving]
  - Muscle rigidity [Not Recovered/Not Resolved]
  - Muscle twitching [Recovered/Resolved]
  - Musculoskeletal stiffness [Not Recovered/Not Resolved]
  - Parkinson^s disease [Recovering/Resolving]
  - Drug ineffective [Unknown]

NARRATIVE: CASE EVENT DATE: 2018
